FAERS Safety Report 5447796-8 (Version None)
Quarter: 2007Q3

REPORT INFORMATION
  Report Type: 
  Country: None (occurrence: None)
  Receive Date: 20070910
  Receipt Date: 20070904
  Transmission Date: 20080115
  Serious: Yes (Hospitalization)
  Sender: FDA-Public Use
  Company Number: FR-ASTRAZENECA-2007CG01261

PATIENT
  Age: 26924 Day
  Sex: Male
  Weight: 70 kg

DRUGS (6)
  1. CASODEX [Suspect]
     Indication: PROSTATE CANCER METASTATIC
     Route: 048
     Dates: start: 20070705
  2. MOPRAL [Suspect]
     Route: 048
     Dates: start: 20070720, end: 20070807
  3. TAHOR [Suspect]
     Route: 048
     Dates: start: 20070720, end: 20070807
  4. SECTRAL [Concomitant]
     Dates: start: 20070720
  5. DISCOTRINE [Concomitant]
     Dates: start: 20070720
  6. ENANTONE [Concomitant]
     Route: 058
     Dates: start: 20070705

REACTIONS (3)
  - CHOLESTASIS [None]
  - HEPATOCELLULAR DAMAGE [None]
  - TRANSAMINASES INCREASED [None]
